FAERS Safety Report 9451107 (Version 1)
Quarter: 2013Q3

REPORT INFORMATION
  Report Type: Report from Study
  Country: US (occurrence: US)
  Receive Date: 20130809
  Receipt Date: 20130809
  Transmission Date: 20140515
  Serious: Yes (Hospitalization, Other)
  Sender: FDA-Public Use
  Company Number: US-ABBOTT-13P-163-1118185-00

PATIENT
  Age: 57 Year
  Sex: Male

DRUGS (6)
  1. HUMIRA [Suspect]
     Indication: CROHN^S DISEASE
     Route: 058
     Dates: start: 200710, end: 200710
  2. HUMIRA [Suspect]
     Dates: start: 200710, end: 200710
  3. HUMIRA [Suspect]
     Dates: start: 200711, end: 201303
  4. HUMIRA [Suspect]
     Dates: start: 201303, end: 201306
  5. FLAGYL [Concomitant]
     Indication: CROHN^S DISEASE
     Dates: start: 201303
  6. CIPRO [Concomitant]
     Indication: CROHN^S DISEASE
     Dates: start: 201303

REACTIONS (10)
  - Stoma site abscess [Recovered/Resolved]
  - Drug effect decreased [Not Recovered/Not Resolved]
  - Pain [Recovered/Resolved]
  - Diarrhoea [Recovered/Resolved]
  - Failure to thrive [Recovered/Resolved]
  - Abdominal pain [Recovered/Resolved]
  - Postoperative ileus [Recovered/Resolved]
  - Infection [Recovered/Resolved]
  - Intestinal perforation [Recovered/Resolved]
  - Crohn^s disease [Recovered/Resolved]
